FAERS Safety Report 13978865 (Version 3)
Quarter: 2017Q4

REPORT INFORMATION
  Report Type: Report from Study
  Country: None (occurrence: US)
  Receive Date: 20170915
  Receipt Date: 20171206
  Transmission Date: 20180321
  Serious: Yes (Hospitalization, Other)
  Sender: FDA-Public Use
  Company Number: US-ABBVIE-17P-163-2098327-00

PATIENT
  Age: 58 Year
  Sex: Female

DRUGS (4)
  1. VENCLEXTA [Suspect]
     Active Substance: VENETOCLAX
     Route: 048
     Dates: start: 20170926
  2. VENCLEXTA [Suspect]
     Active Substance: VENETOCLAX
     Dosage: AS DIRECTED
     Route: 048
     Dates: start: 20170902
  3. VENCLEXTA [Suspect]
     Active Substance: VENETOCLAX
     Route: 048
     Dates: start: 20170919, end: 20170925
  4. VENCLEXTA [Suspect]
     Active Substance: VENETOCLAX
     Indication: ACUTE MYELOID LEUKAEMIA RECURRENT
     Dosage: AS DIRECTED
     Route: 048

REACTIONS (11)
  - White blood cell count decreased [Unknown]
  - Constipation [Unknown]
  - Proctitis [Recovered/Resolved]
  - Thrombocytopenia [Unknown]
  - Haemorrhoid infection [Recovered/Resolved]
  - Off label use [Not Recovered/Not Resolved]
  - Haemorrhoids [Unknown]
  - Haematochezia [Recovered/Resolved]
  - Anorectal infection [Unknown]
  - Abdominal pain [Recovered/Resolved]
  - Pruritus [Unknown]

NARRATIVE: CASE EVENT DATE: 20170919
